FAERS Safety Report 20785705 (Version 1)
Quarter: 2022Q2

REPORT INFORMATION
  Report Type: Spontaneous
  Country: US (occurrence: None)
  Receive Date: 20220504
  Receipt Date: 20220504
  Transmission Date: 20220721
  Serious: No
  Sender: FDA-Public Use
  Company Number: US-ROCHE-2835033

PATIENT
  Sex: Female
  Weight: 72.640 kg

DRUGS (1)
  1. OCREVUS [Suspect]
     Active Substance: OCRELIZUMAB
     Indication: Multiple sclerosis
     Dosage: ONGOING; YES
     Route: 042
     Dates: start: 2019

REACTIONS (11)
  - Cough [Unknown]
  - Nasal congestion [Unknown]
  - Eye irritation [Unknown]
  - Sinus congestion [Unknown]
  - Inflammation [Unknown]
  - Weight decreased [Unknown]
  - Blood cholesterol increased [Unknown]
  - Rash [Unknown]
  - Rash vesicular [Unknown]
  - Pain [Unknown]
  - Muscular weakness [Unknown]
